FAERS Safety Report 17788917 (Version 2)
Quarter: 2020Q2

REPORT INFORMATION
  Report Type: Report from Study
  Country: CA (occurrence: CA)
  Receive Date: 20200514
  Receipt Date: 20200605
  Transmission Date: 20200714
  Serious: Yes (Other)
  Sender: FDA-Public Use
  Company Number: NVSC2020CA104299

PATIENT
  Age: 59 Year
  Sex: Male

DRUGS (6)
  1. DOVOBET [Concomitant]
     Active Substance: BETAMETHASONE\CALCIPOTRIENE
     Indication: PRODUCT USED FOR UNKNOWN INDICATION
     Dosage: UNK
     Route: 061
     Dates: start: 2019
  2. ACITRETIN. [Concomitant]
     Active Substance: ACITRETIN
     Indication: PRODUCT USED FOR UNKNOWN INDICATION
     Dosage: UNK
     Route: 065
     Dates: start: 20190627, end: 201909
  3. TOPISONE [Concomitant]
     Indication: PRODUCT USED FOR UNKNOWN INDICATION
     Dosage: UNK
     Route: 065
     Dates: start: 2019
  4. CYCLOSPORINE. [Suspect]
     Active Substance: CYCLOSPORINE
     Indication: OROPHARYNGEAL PLAQUE
     Dosage: 175 MG, BID
     Route: 065
     Dates: start: 20191207, end: 202002
  5. BETAMETHASONE DIPROPIONATE. [Concomitant]
     Active Substance: BETAMETHASONE DIPROPIONATE
     Indication: PRODUCT USED FOR UNKNOWN INDICATION
     Dosage: UNK
     Route: 061
     Dates: start: 2019, end: 2019
  6. METHOTREXATE. [Concomitant]
     Active Substance: METHOTREXATE
     Indication: PRODUCT USED FOR UNKNOWN INDICATION
     Dosage: UNK UNK, QW
     Route: 048
     Dates: start: 2017, end: 2019

REACTIONS (8)
  - Hypertension [Unknown]
  - Pain [Unknown]
  - Haemorrhage [Unknown]
  - Urticaria [Unknown]
  - Rash macular [Unknown]
  - Insomnia [Unknown]
  - Joint swelling [Unknown]
  - Scratch [Unknown]

NARRATIVE: CASE EVENT DATE: 202003
